FAERS Safety Report 8295165-8 (Version None)
Quarter: 2012Q2

REPORT INFORMATION
  Report Type: 
  Country: None (occurrence: None)
  Receive Date: 20120418
  Receipt Date: 20120301
  Transmission Date: 20120825
  Serious: No
  Sender: FDA-Public Use
  Company Number: US-ASTRAZENECA-2011SE73620

PATIENT
  Age: 55 Year
  Sex: Female

DRUGS (3)
  1. CRESTOR [Suspect]
     Route: 048
  2. SYMBICORT [Concomitant]
  3. NEXIUM [Suspect]
     Route: 048

REACTIONS (4)
  - LUNG DISORDER [None]
  - DRUG DOSE OMISSION [None]
  - PAIN [None]
  - SPEECH DISORDER [None]
